FAERS Safety Report 7526148-0 (Version None)
Quarter: 2011Q2

REPORT INFORMATION
  Report Type: 
  Country: None (occurrence: None)
  Receive Date: 20110606
  Receipt Date: 20110531
  Transmission Date: 20111010
  Serious: Yes (Other)
  Sender: FDA-Public Use
  Company Number: AU-PURDUE-USA-2011-0069000

PATIENT
  Age: 51 Year
  Sex: Female

DRUGS (6)
  1. CARTIA                             /00002701/ [Concomitant]
     Indication: PRODUCT USED FOR UNKNOWN INDICATION
  2. VENTOLIN [Concomitant]
     Indication: PRODUCT USED FOR UNKNOWN INDICATION
  3. OXYCONTIN [Suspect]
     Indication: PRODUCT USED FOR UNKNOWN INDICATION
     Dosage: 25 MG, UNK
     Route: 048
     Dates: end: 20110525
  4. NEXIUM [Concomitant]
     Indication: PRODUCT USED FOR UNKNOWN INDICATION
  5. NOTEN [Concomitant]
     Indication: PRODUCT USED FOR UNKNOWN INDICATION
  6. NEO-MERCAZOLE TAB [Concomitant]
     Indication: PRODUCT USED FOR UNKNOWN INDICATION

REACTIONS (6)
  - SWOLLEN TONGUE [None]
  - ABNORMAL SENSATION IN EYE [None]
  - WHEEZING [None]
  - PARAESTHESIA ORAL [None]
  - LIP PAIN [None]
  - EYE PAIN [None]
